FAERS Safety Report 6839989-X (Version None)
Quarter: 2010Q3

REPORT INFORMATION
  Report Type: 
  Country: None (occurrence: None)
  Receive Date: 20100709
  Receipt Date: 20100628
  Transmission Date: 20110219
  Serious: Yes (Other)
  Sender: FDA-Public Use
  Company Number: 2010SP036713

PATIENT
  Age: 19 Year
  Sex: Female
  Weight: 55.7924 kg

DRUGS (1)
  1. IMPLANON [Suspect]
     Indication: CONTRACEPTION
     Dosage: 68 MG; SBDE
     Route: 059
     Dates: start: 20100526, end: 20100526

REACTIONS (1)
  - JAUNDICE [None]
